FAERS Safety Report 7355881-9 (Version None)
Quarter: 2011Q1

REPORT INFORMATION
  Report Type: 
  Country: None (occurrence: None)
  Receive Date: 20110316
  Receipt Date: 20110307
  Transmission Date: 20110831
  Serious: Yes (Other)
  Sender: FDA-Public Use
  Company Number: US-JNJFOC-20110304016

PATIENT
  Sex: Male
  Weight: 68.04 kg

DRUGS (2)
  1. SIMPONI [Suspect]
     Indication: RHEUMATOID ARTHRITIS
     Route: 058
  2. FOSAMAX [Concomitant]
     Indication: OSTEOPOROSIS
     Route: 048

REACTIONS (12)
  - PHOTOPSIA [None]
  - FEELING HOT [None]
  - HYPERHIDROSIS [None]
  - EYE PRURITUS [None]
  - HYPERSOMNIA [None]
  - EYE IRRITATION [None]
  - MYALGIA [None]
  - FATIGUE [None]
  - CHILLS [None]
  - VITREOUS FLOATERS [None]
  - HEADACHE [None]
  - PYREXIA [None]
